FAERS Safety Report 7689430-2 (Version None)
Quarter: 2011Q3

REPORT INFORMATION
  Report Type: 
  Country: None (occurrence: None)
  Receive Date: 20110817
  Receipt Date: 20110809
  Transmission Date: 20111222
  Serious: Yes (Other)
  Sender: FDA-Public Use
  Company Number: PHHY2011NL72172

PATIENT
  Sex: Male

DRUGS (3)
  1. ZOMETA [Suspect]
     Indication: PROSTATE CANCER
     Dosage: 4MG/5ML PER 28 DAYS
     Dates: start: 20110419
  2. ZOMETA [Suspect]
     Dosage: 4MG/5ML PER 28 DAYS
     Dates: start: 20110713
  3. ZOMETA [Suspect]
     Dosage: 4MG/5ML PER 28 DAYS
     Dates: start: 20110809

REACTIONS (2)
  - MALAISE [None]
  - GENERAL PHYSICAL HEALTH DETERIORATION [None]
